FAERS Safety Report 5663852-3 (Version None)
Quarter: 2008Q1

REPORT INFORMATION
  Report Type: 
  Country: None (occurrence: None)
  Receive Date: 20080311
  Receipt Date: 20080221
  Transmission Date: 20080703
  Serious: Yes (Death, Hospitalization, Other)
  Sender: FDA-Public Use
  Company Number: 2007US002525

PATIENT
  Age: 51 Year
  Sex: Male

DRUGS (15)
  1. AMBISOME [Suspect]
     Indication: MUCORMYCOSIS
     Dosage: 10 MG/KG, UID/QD, IV NOS, 7.5 MG/KG, UID/QD, IV NOS, 3 MG/KG, UID/QD, IV NOS
     Route: 042
     Dates: start: 20070831, end: 20070904
  2. AMBISOME [Suspect]
     Indication: MUCORMYCOSIS
     Dosage: 10 MG/KG, UID/QD, IV NOS, 7.5 MG/KG, UID/QD, IV NOS, 3 MG/KG, UID/QD, IV NOS
     Route: 042
     Dates: start: 20070907, end: 20070911
  3. AMBISOME [Suspect]
     Indication: MUCORMYCOSIS
     Dosage: 10 MG/KG, UID/QD, IV NOS, 7.5 MG/KG, UID/QD, IV NOS, 3 MG/KG, UID/QD, IV NOS
     Route: 042
     Dates: start: 20070912, end: 20070913
  4. AMBISOME [Suspect]
     Indication: MUCORMYCOSIS
     Dosage: 10 MG/KG, UID/QD, IV NOS, 7.5 MG/KG, UID/QD, IV NOS, 3 MG/KG, UID/QD, IV NOS
     Route: 042
     Dates: start: 20070917, end: 20070918
  5. AMBISOME [Suspect]
     Indication: MUCORMYCOSIS
     Dosage: 10 MG/KG, UID/QD, IV NOS, 7.5 MG/KG, UID/QD, IV NOS, 3 MG/KG, UID/QD, IV NOS
     Route: 042
     Dates: start: 20070919, end: 20070922
  6. AMBISOME [Suspect]
     Indication: MUCORMYCOSIS
     Dosage: 10 MG/KG, UID/QD, IV NOS, 7.5 MG/KG, UID/QD, IV NOS, 3 MG/KG, UID/QD, IV NOS
     Route: 042
     Dates: start: 20070928
  7. PERINDOPRIL ERBUMINE [Suspect]
     Indication: HYPERTENSION
     Dosage: 2 MG, ORAL
     Route: 048
     Dates: start: 20070921, end: 20070923
  8. ACTRAPID(INSULIN HUMAN) [Suspect]
     Indication: DIABETES MELLITUS
     Dosage: SUBCUTANEOUS
     Route: 058
     Dates: start: 20070905
  9. LANTUS [Suspect]
     Indication: DIABETES MELLITUS
     Dosage: UID/QD, SUBCUTANEOUS
     Route: 058
  10. CALCIPARINE [Suspect]
     Indication: PHLEBITIS
     Dosage: BID, SUBCUTANEOUS
     Route: 058
  11. TIENAM(IMPENEM,CILASTIN SODIUM) [Suspect]
     Indication: DRUG USE FOR UNKNOWN INDICATION
     Dosage: TID,IV NOS
     Route: 042
  12. OMEPRAZOLE [Suspect]
     Indication: DRUG USE FOR UNKNOWN INDICATION
     Dosage: UID/QD, IV NOS
     Route: 042
  13. LOXEN (NICARDIPINE HYDROCHLORIDE) [Concomitant]
  14. SECTRAL [Concomitant]
  15. EUPRESSYL (URAPIDIL) [Concomitant]

REACTIONS (2)
  - CARDIO-RESPIRATORY ARREST [None]
  - RENAL FAILURE ACUTE [None]
